FAERS Safety Report 7431065-0 (Version None)
Quarter: 2011Q2

REPORT INFORMATION
  Report Type: 
  Country: None (occurrence: None)
  Receive Date: 20110421
  Receipt Date: 20110411
  Transmission Date: 20111010
  Serious: Yes (Hospitalization, Other)
  Sender: FDA-Public Use
  Company Number: US-ELI_LILLY_AND_COMPANY-US201008002248

PATIENT
  Sex: Female
  Weight: 55.329 kg

DRUGS (24)
  1. FORTEO [Suspect]
     Dosage: 20 UG, DAILY (1/D)
  2. BENICAR HCT [Concomitant]
     Dosage: 40/12.5MG, QD
  3. VITAMIN B3 [Concomitant]
  4. SPIRIVA [Concomitant]
     Dosage: 1 D/F, DAILY (1/D)
  5. METOPROLOL SUCCINATE [Concomitant]
     Dosage: 12.5 MG, DAILY (1/D)
  6. VITAMIN B-12 [Concomitant]
     Dosage: 500 UG, QD
  7. AUGMENTIN '125' [Concomitant]
     Dosage: 875/125 MG, BID FOR 7 DAYS
  8. CLONAZEPAM [Concomitant]
     Indication: MUSCLE SPASMS
     Dosage: 0.5 MG, EACH EVENING
  9. CALCIUM +VIT D [Concomitant]
     Route: 065
  10. FORTEO [Suspect]
     Indication: OSTEOPOROSIS
     Dosage: 20 UG, DAILY (1/D)
     Dates: start: 20100506
  11. PROAIR HFA [Concomitant]
     Dosage: 1 D/F, 2/D
     Route: 055
  12. TYLENOL (CAPLET) [Concomitant]
     Dosage: 500 MG, AS NEEDED
  13. CALCIUM [Concomitant]
  14. MELATONIN [Concomitant]
     Indication: SLEEP DISORDER
     Dosage: 5 MG, EACH EVENING
  15. FORTEO [Suspect]
     Dosage: 20 UG, DAILY (1/D)
  16. LOVASTATIN [Concomitant]
     Dosage: 1 D/F, EACH EVENING
  17. METRONIDAZOLE [Concomitant]
     Dosage: UNK UNK, BID
     Route: 061
  18. CLONAZEPAM [Concomitant]
     Dosage: 10 MG, EACH EVENING
  19. FOLIC ACID [Concomitant]
     Dosage: UNK, QD
     Route: 065
  20. ASCORBIC ACID [Concomitant]
     Dosage: 500 MG, QD
     Route: 065
  21. CALCIUM W/MAGNESIUM/ZINC [Concomitant]
  22. SYMBICORT [Concomitant]
     Dosage: 80/4.5, 2 PUFFS TWICE A DAYUNK, BID
     Route: 065
  23. PRILOSEC [Concomitant]
     Dosage: 1 D/F, DAILY (1/D)
  24. MULTI-VITAMIN [Concomitant]
     Dosage: UNK, QD

REACTIONS (17)
  - PNEUMONIA [None]
  - CHILLS [None]
  - INFECTION [None]
  - INFLUENZA [None]
  - BLOOD TEST ABNORMAL [None]
  - TROPONIN INCREASED [None]
  - OXYGEN SATURATION DECREASED [None]
  - INFLUENZA LIKE ILLNESS [None]
  - OXYGEN SUPPLEMENTATION [None]
  - ANGINA PECTORIS [None]
  - VISION BLURRED [None]
  - PULMONARY FIBROSIS [None]
  - VISUAL IMPAIRMENT [None]
  - CHEST PAIN [None]
  - NAUSEA [None]
  - DEEP VEIN THROMBOSIS [None]
  - ALOPECIA [None]
